FAERS Safety Report 5076434-1 (Version None)
Quarter: 2006Q3

REPORT INFORMATION
  Report Type: 
  Country: None (occurrence: None)
  Receive Date: 20060725
  Receipt Date: 20060404
  Transmission Date: 20061208
  Serious: No
  Sender: FDA-Public Use
  Company Number: 200612229BWH

PATIENT
  Age: 48 Year
  Sex: Male

DRUGS (7)
  1. NEXAVAR [Suspect]
     Indication: RENAL CELL CARCINOMA STAGE UNSPECIFIED
     Dosage: 400 MG, BID, ORAL
     Route: 048
     Dates: start: 20060316
  2. LISINOPRIL [Concomitant]
  3. VALTREX [Concomitant]
  4. ZYRTEC [Concomitant]
  5. PROLEUKIN [Concomitant]
  6. GARLIC [Concomitant]
  7. IRON [Concomitant]

REACTIONS (7)
  - PAIN IN EXTREMITY [None]
  - PALLOR [None]
  - PARAESTHESIA [None]
  - RASH GENERALISED [None]
  - SKIN DISORDER [None]
  - SKIN EXFOLIATION [None]
  - VISION BLURRED [None]
